FAERS Safety Report 8989915 (Version 1)
Quarter: 2012Q4

REPORT INFORMATION
  Report Type: 
  Country: JP (occurrence: JP)
  Receive Date: 20121228
  Receipt Date: 20121228
  Transmission Date: 20130627
  Serious: Yes (Other)
  Sender: FDA-Public Use
  Company Number: JP-GLAXOSMITHKLINE-B0854852A

PATIENT

DRUGS (1)
  1. SERETIDE [Suspect]
     Indication: PRODUCT USED FOR UNKNOWN INDICATION
     Route: 055
     Dates: start: 201212

REACTIONS (3)
  - VIIth nerve paralysis [Not Recovered/Not Resolved]
  - Hypokalaemia [Unknown]
  - Muscle spasms [Unknown]
